FAERS Safety Report 11091683 (Version 1)
Quarter: 2015Q2

REPORT INFORMATION
  Report Type: Spontaneous
  Country: US (occurrence: US)
  Receive Date: 20150505
  Receipt Date: 20150505
  Transmission Date: 20150821
  Serious: Yes (Hospitalization)
  Sender: FDA-Public Use
  Company Number: US-SA-2015SA058700

PATIENT
  Age: 79 Year
  Sex: Female

DRUGS (16)
  1. DACARBAZINE. [Concomitant]
     Active Substance: DACARBAZINE
  2. GABAPENTIN. [Concomitant]
     Active Substance: GABAPENTIN
  3. VITAMIN C [Concomitant]
     Active Substance: ASCORBIC ACID
  4. NEULASTA [Concomitant]
     Active Substance: PEGFILGRASTIM
  5. BLEOMYCIN [Concomitant]
     Active Substance: BLEOMYCIN SULFATE
  6. LOSARTAN [Concomitant]
     Active Substance: LOSARTAN
  7. GEMCITABINE [Concomitant]
     Active Substance: GEMCITABINE\GEMCITABINE HYDROCHLORIDE
  8. FUROSEMIDE. [Concomitant]
     Active Substance: FUROSEMIDE
  9. VITAMIN B6 [Concomitant]
     Active Substance: PYRIDOXINE HYDROCHLORIDE
  10. ADRIAMYCIN [Concomitant]
     Active Substance: DOXORUBICIN HYDROCHLORIDE
  11. COREG [Concomitant]
     Active Substance: CARVEDILOL
  12. IRON [Concomitant]
     Active Substance: IRON
  13. ELITEK [Suspect]
     Active Substance: RASBURICASE
     Route: 065
     Dates: start: 20140125, end: 20140125
  14. METFORMIN [Concomitant]
     Active Substance: METFORMIN HYDROCHLORIDE
     Indication: DIABETES MELLITUS
  15. HYDROCHLOROTHIAZIDE. [Concomitant]
     Active Substance: HYDROCHLOROTHIAZIDE
  16. VITAMIN B12 [Concomitant]
     Active Substance: CYANOCOBALAMIN

REACTIONS (7)
  - Dysstasia [Not Recovered/Not Resolved]
  - Asthenia [Not Recovered/Not Resolved]
  - Dizziness [Not Recovered/Not Resolved]
  - Hypersensitivity [Not Recovered/Not Resolved]
  - Disorientation [Not Recovered/Not Resolved]
  - Drug administration error [Unknown]
  - Loss of consciousness [Not Recovered/Not Resolved]

NARRATIVE: CASE EVENT DATE: 20140126
